FAERS Safety Report 10148877 (Version 1)
Quarter: 2014Q2

REPORT INFORMATION
  Report Type: Spontaneous
  Country: FR (occurrence: FR)
  Receive Date: 20140502
  Receipt Date: 20140502
  Transmission Date: 20141212
  Serious: Yes (Hospitalization, Other)
  Sender: FDA-Public Use
  Company Number: FR-PFIZER INC-2014119738

PATIENT
  Age: 88 Year
  Sex: Female

DRUGS (7)
  1. CORDARONE [Suspect]
     Dosage: 200 MG, DAILY
     Route: 048
     Dates: start: 201401, end: 20140302
  2. EXFORGE [Concomitant]
     Dosage: UNK
  3. DETENSIEL [Concomitant]
     Dosage: UNK
  4. LASILIX [Concomitant]
     Dosage: UNK
  5. PREVISCAN [Concomitant]
     Dosage: UNK
  6. KARDEGIC [Concomitant]
     Dosage: UNK
  7. CORVASAL [Concomitant]
     Dosage: UNK

REACTIONS (4)
  - Interstitial lung disease [Recovering/Resolving]
  - Respiratory distress [Recovering/Resolving]
  - Pneumocystis test positive [Recovering/Resolving]
  - Electrocardiogram QT prolonged [Unknown]
